FAERS Safety Report 18195219 (Version 8)
Quarter: 2024Q4

REPORT INFORMATION
  Report Type: Spontaneous
  Country: BG (occurrence: BG)
  Receive Date: 20200826
  Receipt Date: 20241115
  Transmission Date: 20250115
  Serious: Yes (Death, Hospitalization, Other)
  Sender: BAUSCH AND LOMB
  Company Number: BG-ROCHE-2656505

PATIENT
  Age: 19 Year
  Sex: Male

DRUGS (68)
  1. DEXAMETHASONE [Suspect]
     Active Substance: DEXAMETHASONE
     Indication: Product used for unknown indication
     Dosage: 4 MG/1 ML - 2X2 AMP
     Route: 065
     Dates: start: 2020
  2. DEXAMETHASONE [Suspect]
     Active Substance: DEXAMETHASONE
     Dosage: 4 MG/1 ML - 2X2 AMP
     Route: 065
  3. METAMIZOLE [Suspect]
     Active Substance: METAMIZOLE
     Indication: Product used for unknown indication
     Dosage: X 2 CAPS AMP. 500MG/ML 2 ML
     Route: 065
     Dates: start: 2020
  4. METAMIZOLE [Suspect]
     Active Substance: METAMIZOLE
     Dosage: X 2 CAPS AMP. 500MG/ML 2 ML
     Route: 065
  5. SODIUM CHLORIDE [Suspect]
     Active Substance: SODIUM CHLORIDE
     Indication: Product used for unknown indication
     Dosage: 100 ML ECO-BOTTLE BY PRESCRIPTION
     Route: 065
     Dates: start: 2020
  6. SODIUM CHLORIDE [Suspect]
     Active Substance: SODIUM CHLORIDE
     Dosage: 100 ML ECO-BOTTLE BY PRESCRIPTION
     Route: 065
  7. DEXTROSE [Suspect]
     Active Substance: DEXTROSE MONOHYDRATE
     Indication: Product used for unknown indication
     Dosage: BY PRESCRIPTION
     Route: 042
  8. DEXTROSE [Suspect]
     Active Substance: DEXTROSE MONOHYDRATE
     Dosage: BY PRESCRIPTION
     Route: 042
  9. DEXTROSE [Suspect]
     Active Substance: DEXTROSE MONOHYDRATE
     Dosage: BY PRESCRIPTION
     Route: 042
  10. MEROPENEM [Suspect]
     Active Substance: MEROPENEM
     Indication: Product used for unknown indication
     Dosage: VIAL (3X1.0)
     Route: 065
  11. MEROPENEM [Suspect]
     Active Substance: MEROPENEM
     Dosage: VIAL (3X1.0)
     Route: 065
  12. MEROPENEM [Suspect]
     Active Substance: MEROPENEM
     Dosage: VIAL (3X1.0)
     Route: 065
  13. ALBUMIN HUMAN [Suspect]
     Active Substance: ALBUMIN HUMAN
     Indication: Product used for unknown indication
     Dosage: TOTAL
     Route: 065
     Dates: start: 2020
  14. ALBUMIN HUMAN [Suspect]
     Active Substance: ALBUMIN HUMAN
     Dosage: TOTAL, VIAL
     Route: 065
  15. CALCIUM CHLORIDE\MAGNESIUM CHLORIDE\POTASSIUM CHLORIDE\SODIUM ACETATE\ [Suspect]
     Active Substance: CALCIUM CHLORIDE\MAGNESIUM CHLORIDE\POTASSIUM CHLORIDE\SODIUM ACETATE\SODIUM CHLORIDE
     Indication: Product used for unknown indication
     Dosage: 500 L - ECO-VIAL - X500 ML
     Route: 065
     Dates: start: 2020
  16. CALCIUM CHLORIDE\MAGNESIUM CHLORIDE\POTASSIUM CHLORIDE\SODIUM ACETATE\ [Suspect]
     Active Substance: CALCIUM CHLORIDE\MAGNESIUM CHLORIDE\POTASSIUM CHLORIDE\SODIUM ACETATE\SODIUM CHLORIDE
     Dosage: 500 L - ECO-VIAL - X500 ML
     Route: 065
  17. SACCHAROMYCES CEREVISIAE [Suspect]
     Active Substance: SACCHAROMYCES CEREVISIAE
     Indication: Product used for unknown indication
     Dosage: 250 MG 10 - 2X2 CAPS
     Route: 065
     Dates: start: 2020
  18. SACCHAROMYCES CEREVISIAE [Suspect]
     Active Substance: SACCHAROMYCES CEREVISIAE
     Dosage: 250 MG 10 - 2X2 CAPS
     Route: 065
  19. NADROPARIN CALCIUM [Suspect]
     Active Substance: NADROPARIN CALCIUM
     Indication: Product used for unknown indication
     Dosage: 1 VIAL MG/ML AS PRESCRIBED
     Route: 065
     Dates: start: 2020
  20. NADROPARIN CALCIUM [Suspect]
     Active Substance: NADROPARIN CALCIUM
     Dosage: 1 VIAL MG/ML AS PRESCRIBED
     Route: 065
  21. MIDAZOLAM [Suspect]
     Active Substance: MIDAZOLAM
     Indication: Product used for unknown indication
     Dosage: 5 MG - 5 5 ML - IN PERFUSION
     Route: 065
     Dates: start: 2020
  22. MIDAZOLAM [Suspect]
     Active Substance: MIDAZOLAM
     Dosage: 5 MG - 5 5 ML - IN PERFUSION
     Route: 065
  23. SINEQUAN [Suspect]
     Active Substance: DOXEPIN HYDROCHLORIDE
     Indication: Product used for unknown indication
     Dosage: X 2 CAPS
     Route: 065
     Dates: start: 2020
  24. SINEQUAN [Suspect]
     Active Substance: DOXEPIN HYDROCHLORIDE
     Dosage: X 2 CAPS
     Route: 065
  25. AZITHROMYCIN [Suspect]
     Active Substance: AZITHROMYCIN
     Indication: Product used for unknown indication
     Dosage: VIAL
     Route: 065
     Dates: start: 2020
  26. AZITHROMYCIN [Suspect]
     Active Substance: AZITHROMYCIN
     Dosage: VIAL
     Route: 065
  27. BROMHEXINE [Suspect]
     Active Substance: BROMHEXINE
     Indication: Product used for unknown indication
     Dosage: 4 MG 2 ML - AS PRESCRIBED
     Route: 065
     Dates: start: 2020
  28. BROMHEXINE [Suspect]
     Active Substance: BROMHEXINE
     Dosage: 4 MG 2 ML - AS PRESCRIBED
     Route: 065
  29. FAMOTIDINE [Suspect]
     Active Substance: FAMOTIDINE
     Indication: Product used for unknown indication
     Dosage: 2X1 VIAL
     Route: 065
     Dates: start: 2020
  30. FAMOTIDINE [Suspect]
     Active Substance: FAMOTIDINE
     Dosage: 2X1 VIAL
     Route: 065
  31. TOCILIZUMAB [Suspect]
     Active Substance: TOCILIZUMAB
     Indication: COVID-19 pneumonia
     Dosage: 400 MG/20 ML
     Route: 065
     Dates: start: 2020
  32. TOCILIZUMAB [Suspect]
     Active Substance: TOCILIZUMAB
     Indication: Off label use
     Dosage: 200 MG/20ML
     Route: 065
     Dates: start: 20200101
  33. TOCILIZUMAB [Suspect]
     Active Substance: TOCILIZUMAB
     Dosage: 200 MG/20 ML
     Route: 065
     Dates: start: 20200101
  34. MELOXICAM\PRIDINOL MESILATE [Suspect]
     Active Substance: MELOXICAM\PRIDINOL MESILATE
     Indication: Product used for unknown indication
     Dosage: 5 MG/ML
     Route: 065
     Dates: start: 2020
  35. MELOXICAM\PRIDINOL MESILATE [Suspect]
     Active Substance: MELOXICAM\PRIDINOL MESILATE
     Dosage: 5 MG/ML, FLEXIDOL RELAX
     Route: 065
  36. CLONIDINE HYDROCHLORIDE [Suspect]
     Active Substance: CLONIDINE HYDROCHLORIDE
     Indication: Product used for unknown indication
     Dosage: 0.15 MG/ML - AS PRESCRIBED
     Route: 065
     Dates: start: 2020
  37. CLONIDINE HYDROCHLORIDE [Suspect]
     Active Substance: CLONIDINE HYDROCHLORIDE
     Dosage: 0.15 MG/ML - AS PRESCRIBED
     Route: 065
  38. CALCIUM GLUCONATE [Suspect]
     Active Substance: CALCIUM GLUCONATE
     Indication: Product used for unknown indication
     Dosage: 8.94 MG/ML - 10 ML - 2X1 AMP
     Route: 065
     Dates: start: 2020
  39. CALCIUM GLUCONATE [Suspect]
     Active Substance: CALCIUM GLUCONATE
     Dosage: 8.94 MG/ML - 10 ML - 2X1 AMP
     Route: 065
  40. METHYLPREDNISOLONE [Suspect]
     Active Substance: METHYLPREDNISOLONE
     Indication: Product used for unknown indication
     Dosage: 40 MG / 2 ML
     Route: 065
     Dates: start: 2020
  41. METHYLPREDNISOLONE [Suspect]
     Active Substance: METHYLPREDNISOLONE
     Dosage: 40 MG / 2 ML
     Route: 065
  42. FUROSEMIDE [Suspect]
     Active Substance: FUROSEMIDE
     Indication: Product used for unknown indication
     Dosage: 10 MG/ML - AS PRESCRIBED
     Route: 065
     Dates: start: 2020
  43. FUROSEMIDE [Suspect]
     Active Substance: FUROSEMIDE
     Dosage: 10 MG/ML - AS PRESCRIBED
     Route: 065
  44. AZITHROMYCIN [Suspect]
     Active Substance: AZITHROMYCIN
     Indication: Product used for unknown indication
     Route: 065
     Dates: start: 2020
  45. AZITHROMYCIN [Suspect]
     Active Substance: AZITHROMYCIN
     Route: 065
  46. ENOXAPARIN SODIUM [Suspect]
     Active Substance: ENOXAPARIN SODIUM
     Indication: Product used for unknown indication
     Dosage: 60 MG/0.60 ML - X1VIAL
     Route: 065
     Dates: start: 2020
  47. ENOXAPARIN SODIUM [Suspect]
     Active Substance: ENOXAPARIN SODIUM
     Dosage: 60 MG/0.60 ML - X1VIAL
     Route: 065
  48. METOCLOPRAMIDE HYDROCHLORIDE [Suspect]
     Active Substance: METOCLOPRAMIDE HYDROCHLORIDE
     Indication: Product used for unknown indication
     Dosage: 10 MG - 2 ML - AS PRESCRIBED
     Route: 065
     Dates: start: 2020
  49. METOCLOPRAMIDE HYDROCHLORIDE [Suspect]
     Active Substance: METOCLOPRAMIDE HYDROCHLORIDE
     Dosage: 10 MG - 2 ML - AS PRESCRIBED
     Route: 065
  50. ESOMEPRAZOLE [Suspect]
     Active Substance: ESOMEPRAZOLE
     Indication: Product used for unknown indication
     Dosage: 2X1 VIAL
     Route: 065
     Dates: start: 2020
  51. ESOMEPRAZOLE [Suspect]
     Active Substance: ESOMEPRAZOLE
     Dosage: 2X1 VIAL
     Route: 065
  52. DIETARY SUPPLEMENT\HERBALS\MILK THISTLE [Suspect]
     Active Substance: MILK THISTLE
     Indication: Product used for unknown indication
     Dosage: 90 MG 30 PCS. - ACCORDING TO THE SCHEME
     Route: 065
     Dates: start: 2020
  53. DIETARY SUPPLEMENT\HERBALS\MILK THISTLE [Suspect]
     Active Substance: MILK THISTLE
     Dosage: 90 MG 30 PCS. - ACCORDING TO THE SCHEME
     Route: 065
  54. VANCOCIN [Suspect]
     Active Substance: VANCOMYCIN HYDROCHLORIDE
     Indication: Product used for unknown indication
     Dosage: VIAL (2X1.0)
     Route: 065
     Dates: start: 2020
  55. VANCOCIN [Suspect]
     Active Substance: VANCOMYCIN HYDROCHLORIDE
     Dosage: VIAL (2X1.0)
     Route: 065
  56. ACETAMINOPHEN [Suspect]
     Active Substance: ACETAMINOPHEN
     Indication: Product used for unknown indication
     Dosage: 10 MG/ML
     Route: 065
     Dates: start: 2020
  57. ACETAMINOPHEN [Suspect]
     Active Substance: ACETAMINOPHEN
     Dosage: 10 MG/ML
     Route: 065
  58. MEROPENEM [Suspect]
     Active Substance: MEROPENEM
     Indication: Product used for unknown indication
     Dosage: VIAL (3X1.0)
     Route: 065
     Dates: start: 2020
  59. VITAMIN C [Suspect]
     Active Substance: ASCORBIC ACID
     Indication: Product used for unknown indication
     Dosage: 10 5 5 ML 2X4 AMP
     Route: 065
     Dates: start: 2020
  60. VITAMIN C [Suspect]
     Active Substance: ASCORBIC ACID
     Dosage: 10 5 5 ML 2X4 AMP
     Route: 065
  61. CHLOROQUINE PHOSPHATE [Suspect]
     Active Substance: CHLOROQUINE PHOSPHATE
     Indication: Product used for unknown indication
     Dosage: 2X1 TABLETS
     Route: 065
     Dates: start: 2020
  62. CHLOROQUINE PHOSPHATE [Suspect]
     Active Substance: CHLOROQUINE PHOSPHATE
     Dosage: 2X1 TABLETS
     Route: 065
  63. CITICOLINE [Suspect]
     Active Substance: CITICOLINE
     Indication: Product used for unknown indication
     Dosage: 1000 MG 4 ML 2X1 AMP
     Route: 065
     Dates: start: 2020
  64. CITICOLINE [Suspect]
     Active Substance: CITICOLINE
     Dosage: 1000 MG 4 ML 2X1 AMP
     Route: 065
  65. FLUCONAZOLE [Suspect]
     Active Substance: FLUCONAZOLE
     Indication: Product used for unknown indication
     Dosage: VIAL, 2 MG/1 ML - 100 ML - X 2 VIAL
     Route: 065
     Dates: start: 2020
  66. FLUCONAZOLE [Suspect]
     Active Substance: FLUCONAZOLE
     Dosage: VIAL, 2 MG/1 ML - 100 ML - X 2 VIAL
     Route: 065
  67. AMINO ACIDS\DEXTROSE\ELECTROLYTES NOS\SOYBEAN OIL [Suspect]
     Active Substance: AMINO ACIDS\DEXTROSE\ELECTROLYTES NOS\SOYBEAN OIL
     Indication: Product used for unknown indication
     Dosage: 875 ML - 2 PCS
     Route: 042
     Dates: start: 2020
  68. AMINO ACIDS\DEXTROSE\ELECTROLYTES NOS\SOYBEAN OIL [Suspect]
     Active Substance: AMINO ACIDS\DEXTROSE\ELECTROLYTES NOS\SOYBEAN OIL
     Dosage: 875 ML - 2 PCS
     Route: 065

REACTIONS (15)
  - Cardiovascular insufficiency [Fatal]
  - Brain oedema [Fatal]
  - COVID-19 pneumonia [Fatal]
  - Pulmonary oedema [Fatal]
  - Embolism [Fatal]
  - Acute respiratory failure [Fatal]
  - Encephalopathy [Fatal]
  - Confusional state [Fatal]
  - Hallucination [Fatal]
  - Hypertension [Fatal]
  - Tachypnoea [Fatal]
  - Hypoxia [Fatal]
  - Intentional product use issue [Unknown]
  - Off label use [Unknown]
  - Off label use [Unknown]

NARRATIVE: CASE EVENT DATE: 20200101
